FAERS Safety Report 22651575 (Version 1)
Quarter: 2023Q2

REPORT INFORMATION
  Report Type: Spontaneous
  Country: US (occurrence: US)
  Receive Date: 20230628
  Receipt Date: 20230628
  Transmission Date: 20230721
  Serious: No
  Sender: FDA-Public Use
  Company Number: US-CTI BIOPHARMA-2023US03454

PATIENT

DRUGS (8)
  1. VONJO [Suspect]
     Active Substance: PACRITINIB
     Indication: Myelofibrosis
     Dosage: 200 MG, BID
     Route: 048
     Dates: start: 20220713
  2. HYDROXYUREA [Concomitant]
     Active Substance: HYDROXYUREA
  3. METOPROLOL SUCCINATE [Concomitant]
     Active Substance: METOPROLOL SUCCINATE
  4. PRAVASTATIN [Concomitant]
     Active Substance: PRAVASTATIN
  5. ACYCLOVIR [Concomitant]
     Active Substance: ACYCLOVIR
  6. COENZYM Q10 [Concomitant]
  7. BIOTIN [Concomitant]
     Active Substance: BIOTIN
  8. FISH OIL [Concomitant]
     Active Substance: FISH OIL

REACTIONS (1)
  - Thinking abnormal [Unknown]
